FAERS Safety Report 15998022 (Version 2)
Quarter: 2019Q1

REPORT INFORMATION
  Report Type: Spontaneous
  Country: US (occurrence: US)
  Receive Date: 20190222
  Receipt Date: 20190301
  Transmission Date: 20190418
  Serious: Yes (Hospitalization, Other)
  Sender: FDA-Public Use
  Company Number: US-009507513-1902USA005600

PATIENT
  Sex: Female

DRUGS (3)
  1. NUVARING [Suspect]
     Active Substance: ETHINYL ESTRADIOL\ETONOGESTREL
     Indication: CONTRACEPTION
     Dosage: UNK
     Route: 067
     Dates: end: 20170217
  2. PROTONIX [Concomitant]
     Active Substance: PANTOPRAZOLE SODIUM
     Dosage: 40 MG EC TABLET TAKE 40 MG BY MOUTH DAILY
     Route: 048
  3. VITAMINS (UNSPECIFIED) [Concomitant]
     Active Substance: VITAMINS
     Dosage: 9 MG IRON/400 MCG TAB, TAKE 1 TAB BY MOUTH DAILY
     Route: 048

REACTIONS (8)
  - Headache [Unknown]
  - Pulmonary embolism [Recovering/Resolving]
  - Obesity [Unknown]
  - Anaemia [Unknown]
  - Muscle spasms [Unknown]
  - Diarrhoea [Unknown]
  - Right ventricular dysfunction [Recovering/Resolving]
  - Nausea [Unknown]

NARRATIVE: CASE EVENT DATE: 2017
